FAERS Safety Report 17072912 (Version 2)
Quarter: 2019Q4

REPORT INFORMATION
  Report Type: Spontaneous
  Country: US (occurrence: US)
  Receive Date: 20191125
  Receipt Date: 20191128
  Transmission Date: 20200122
  Serious: No
  Sender: FDA-Public Use
  Company Number: US-ELI_LILLY_AND_COMPANY-US201911009816

PATIENT
  Age: 74 Year
  Sex: Male
  Weight: 81.63 kg

DRUGS (3)
  1. ADCIRCA [Suspect]
     Active Substance: TADALAFIL
     Indication: PULMONARY ARTERIAL HYPERTENSION
     Dosage: 3 DOSAGE FORM, DAILY
     Route: 065
  2. TYVASO [Suspect]
     Active Substance: TREPROSTINIL
     Dosage: 3-2 BREATHS, UNKNOWN
     Route: 055
  3. TYVASO [Suspect]
     Active Substance: TREPROSTINIL
     Indication: PULMONARY ARTERIAL HYPERTENSION
     Dosage: 3-9 BREATHS, QID
     Route: 055
     Dates: start: 20191010

REACTIONS (6)
  - Bronchitis [Unknown]
  - Gait disturbance [Unknown]
  - Productive cough [Unknown]
  - Pneumonia [Unknown]
  - Decreased activity [Unknown]
  - Feeling abnormal [Unknown]
